FAERS Safety Report 6398185-3 (Version None)
Quarter: 2009Q4

REPORT INFORMATION
  Report Type: 
  Country: None (occurrence: None)
  Receive Date: 20091013
  Receipt Date: 20091007
  Transmission Date: 20100525
  Serious: Yes (Hospitalization)
  Sender: FDA-Public Use
  Company Number: GB-BRISTOL-MYERS SQUIBB COMPANY-14810634

PATIENT

DRUGS (1)
  1. SPRYCEL [Suspect]
     Dates: end: 20080201

REACTIONS (1)
  - SQUAMOUS CELL CARCINOMA [None]
